FAERS Safety Report 7875565-8 (Version None)
Quarter: 2011Q4

REPORT INFORMATION
  Report Type: 
  Country: None (occurrence: None)
  Receive Date: 20111031
  Receipt Date: 20111024
  Transmission Date: 20120403
  Serious: Yes (Other)
  Sender: FDA-Public Use
  Company Number: US-SANOFI-AVENTIS-2011SA070037

PATIENT
  Sex: Male

DRUGS (2)
  1. COUMADIN [Concomitant]
  2. LOVENOX [Suspect]
     Route: 065

REACTIONS (3)
  - THROMBOSIS [None]
  - OEDEMA PERIPHERAL [None]
  - NEOPLASM MALIGNANT [None]
